FAERS Safety Report 4523108-9 (Version None)
Quarter: 2004Q4

REPORT INFORMATION
  Report Type: 
  Country: None (occurrence: None)
  Receive Date: 20041208
  Receipt Date: 20041126
  Transmission Date: 20050328
  Serious: Yes (Other)
  Sender: FDA-Public Use
  Company Number: 2004100046

PATIENT
  Sex: Male

DRUGS (1)
  1. CABERGOLINE [Suspect]
     Indication: PARKINSON'S DISEASE
     Dosage: MG, ORAL
     Route: 048
     Dates: start: 20010101

REACTIONS (2)
  - MALIGNANT MELANOMA [None]
  - METASTASES TO LYMPH NODES [None]
